FAERS Safety Report 9485417 (Version 2)
Quarter: 2013Q3

REPORT INFORMATION
  Report Type: Report from Study
  Country: DE (occurrence: DE)
  Receive Date: 20130829
  Receipt Date: 20130913
  Transmission Date: 20140515
  Serious: Yes (Hospitalization)
  Sender: FDA-Public Use
  Company Number: DE-MERCK-1308DEU009846

PATIENT
  Age: 52 Year
  Sex: Female
  Weight: 97.7 kg

DRUGS (5)
  1. BOCEPREVIR [Suspect]
     Indication: CHRONIC HEPATITIS C
     Dosage: 800 MG, TID
     Route: 048
     Dates: start: 20130518, end: 20130803
  2. PEGASYS [Suspect]
     Indication: CHRONIC HEPATITIS C
     Dosage: 90 MICROGRAM, QW
     Route: 058
     Dates: start: 20130419, end: 20130803
  3. RIBAVIRIN [Suspect]
     Indication: CHRONIC HEPATITIS C
     Dosage: 1000 MG, QD (FREQUENCY 3-0-2)
     Route: 048
     Dates: start: 20130419, end: 20130803
  4. CITALOPRAM [Concomitant]
     Indication: DEPRESSION
     Dosage: 10 MG, QD
     Route: 048
     Dates: start: 201304
  5. PANTOZOL [Concomitant]
     Dosage: 40 MG, QD
     Route: 048

REACTIONS (4)
  - Visual acuity reduced [Recovering/Resolving]
  - Aphasia [Recovered/Resolved]
  - Speech disorder [Recovered/Resolved]
  - Dysarthria [Recovering/Resolving]
